FAERS Safety Report 22089637 (Version 1)
Quarter: 2023Q1

REPORT INFORMATION
  Report Type: Spontaneous
  Country: US (occurrence: None)
  Receive Date: 20230310
  Receipt Date: 20230310
  Transmission Date: 20230418
  Serious: Yes (Hospitalization)
  Sender: FDA-Public Use
  Company Number: None

PATIENT
  Age: 22 Month
  Sex: Male

DRUGS (1)
  1. TADLIQ [Suspect]
     Active Substance: TADALAFIL
     Indication: Pulmonary arterial hypertension
     Dosage: FREQUENCY : DAILY;?OTHER ROUTE : G TUBE;?
     Route: 050
     Dates: start: 20230223

REACTIONS (1)
  - Surgery [None]

NARRATIVE: CASE EVENT DATE: 20230309
